FAERS Safety Report 11029757 (Version 2)
Quarter: 2015Q2

REPORT INFORMATION
  Report Type: Spontaneous
  Country: US (occurrence: None)
  Receive Date: 20150413
  Receipt Date: 20150415
  Transmission Date: 20150821
  Serious: Yes (Other)
  Sender: FDA-Public Use
  Company Number: US-2015VAL000249

PATIENT
  Age: 80 Year
  Sex: Female

DRUGS (9)
  1. LUTEIN (XANTOFYL) [Concomitant]
  2. CELEBREX [Concomitant]
     Active Substance: CELECOXIB
  3. PLAQUENIL (HYDROCHLOROQUINE PHOSPHATE) [Concomitant]
  4. SYNTHROID [Concomitant]
     Active Substance: LEVOTHYROXINE SODIUM
  5. BENAZEPRIL HYDROCHLORIDE, HYDROCHLOROTHIAZIDE (BENAZEPRIL HYDROCHLORIDE, HYDROCHLOROTHIAZIDE) UNKNOWN [Suspect]
     Active Substance: BENAZEPRIL HYDROCHLORIDE\HYDROCHLOROTHIAZIDE
     Indication: PRODUCT USED FOR UNKNOWN INDICATION
  6. DIOVAN HCT [Suspect]
     Active Substance: HYDROCHLOROTHIAZIDE\VALSARTAN
     Indication: PRODUCT USED FOR UNKNOWN INDICATION
     Dosage: 325/X MG
  7. VITAMIN D (ERGOCALCIFEROL) [Concomitant]
     Active Substance: ERGOCALCIFEROL
  8. BIOTRIN (SULFAMETHOXAZOLE, TRIMETHOPRIM) [Concomitant]
  9. COUMADIN [Concomitant]
     Active Substance: WARFARIN SODIUM

REACTIONS (5)
  - Drug ineffective [None]
  - Blood pressure increased [None]
  - Balance disorder [None]
  - Thrombosis [None]
  - Malaise [None]
